FAERS Safety Report 12844473 (Version 1)
Quarter: 2016Q4

REPORT INFORMATION
  Report Type: Spontaneous
  Country: US (occurrence: US)
  Receive Date: 20161012
  Receipt Date: 20161012
  Transmission Date: 20170207
  Serious: No
  Sender: FDA-Public Use
  Company Number: None

PATIENT
  Age: 55 Year
  Sex: Female
  Weight: 55.8 kg

DRUGS (5)
  1. ZOMIG [Concomitant]
     Active Substance: ZOLMITRIPTAN
  2. IBUPROFEN. [Concomitant]
     Active Substance: IBUPROFEN
  3. ARMODAFINIL. [Suspect]
     Active Substance: ARMODAFINIL
     Indication: NARCOLEPSY
     Dosage: ?          QUANTITY:1 TABLET(S);?
     Route: 048
     Dates: start: 20160908, end: 20161001
  4. NORCO [Concomitant]
     Active Substance: ACETAMINOPHEN\HYDROCODONE BITARTRATE
  5. VALIUM [Concomitant]
     Active Substance: DIAZEPAM

REACTIONS (3)
  - Alopecia [None]
  - Anger [None]
  - Emotional distress [None]

NARRATIVE: CASE EVENT DATE: 20161001
